FAERS Safety Report 20999441 (Version 6)
Quarter: 2024Q2

REPORT INFORMATION
  Report Type: Report from Study
  Country: CA (occurrence: CA)
  Receive Date: 20220623
  Receipt Date: 20240516
  Transmission Date: 20240716
  Serious: Yes (Other)
  Sender: FDA-Public Use
  Company Number: CA-TAKEDA-2017TUS025204

PATIENT
  Age: 55 Year
  Sex: Male
  Weight: 55.3 kg

DRUGS (3)
  1. VEDOLIZUMAB [Suspect]
     Active Substance: VEDOLIZUMAB
     Indication: Crohn^s disease
     Dosage: 300 MILLIGRAM
     Route: 042
     Dates: start: 20170823
  2. VEDOLIZUMAB [Suspect]
     Active Substance: VEDOLIZUMAB
     Dosage: 300 MILLIGRAM, Q4WEEKS
     Route: 042
     Dates: start: 202111, end: 20240503
  3. METHYLCOBALAMIN [Concomitant]
     Active Substance: METHYLCOBALAMIN
     Dosage: UNK

REACTIONS (16)
  - Crohn^s disease [Unknown]
  - Pyoderma gangrenosum [Unknown]
  - Ileal stenosis [Unknown]
  - Large intestinal stenosis [Unknown]
  - Nephrolithiasis [Unknown]
  - Anal abscess [Unknown]
  - Off label use [Unknown]
  - Fistula [Unknown]
  - Erythema nodosum [Unknown]
  - Impaired quality of life [Unknown]
  - Inguinal hernia [Unknown]
  - Hepatic steatosis [Unknown]
  - Atelectasis [Unknown]
  - Drug ineffective [Unknown]
  - Anal fissure [Unknown]
  - Arthralgia [Unknown]

NARRATIVE: CASE EVENT DATE: 20211101
